FAERS Safety Report 13865659 (Version 1)
Quarter: 2017Q3

REPORT INFORMATION
  Report Type: Spontaneous
  Country: DE (occurrence: DE)
  Receive Date: 20170814
  Receipt Date: 20170814
  Transmission Date: 20171127
  Serious: Yes (Life-Threatening, Hospitalization)
  Sender: FDA-Public Use
  Company Number: GXKR2017DE004053

PATIENT
  Age: 50 Year
  Sex: Male

DRUGS (5)
  1. ERYTHROMYCIN. [Suspect]
     Active Substance: ERYTHROMYCIN
     Indication: FALL
     Dosage: 500 MG, 3X DAILY
     Route: 048
     Dates: start: 20170623, end: 20170627
  2. METAMIZOLE [Concomitant]
     Active Substance: METAMIZOLE
     Indication: ANALGESIC THERAPY
     Dosage: AS NEEDED
     Route: 048
     Dates: end: 20170627
  3. AMOXICLAV [Suspect]
     Active Substance: AMOXICILLIN\CLAVULANIC ACID
     Indication: FALL
     Dosage: 1 DF, TWICE DAILY
     Route: 048
     Dates: start: 20170622, end: 20170623
  4. PANTOPRAZOLE [Concomitant]
     Active Substance: PANTOPRAZOLE
     Indication: ABDOMINAL DISCOMFORT
     Dosage: DAILY DOSE: 40 MG MILLIGRAM(S) EVERY DAY
     Route: 048
  5. WP THYROID [Concomitant]
     Active Substance: THYROID, PORCINE
     Indication: HYPOTHYROIDISM
     Dosage: UNK UKN, UNK
     Route: 065

REACTIONS (10)
  - Rash pustular [Recovered/Resolved]
  - Dyspnoea [Recovered/Resolved]
  - Chills [Recovered/Resolved]
  - Pyrexia [Recovered/Resolved]
  - Body temperature increased [Recovered/Resolved]
  - Hypotension [Recovered/Resolved]
  - Skin exfoliation [Recovered/Resolved]
  - Drug eruption [Recovered/Resolved]
  - Haematoma [Recovered/Resolved]
  - Papule [Recovered/Resolved]

NARRATIVE: CASE EVENT DATE: 20170622
